FAERS Safety Report 14692849 (Version 1)
Quarter: 2018Q1

REPORT INFORMATION
  Report Type: Spontaneous
  Country: US (occurrence: US)
  Receive Date: 20180329
  Receipt Date: 20180329
  Transmission Date: 20180509
  Serious: No
  Sender: FDA-Public Use
  Company Number: US-BRISTOL-MYERS SQUIBB COMPANY-BMS-2018-028436

PATIENT
  Age: 72 Year
  Sex: Female

DRUGS (1)
  1. SPRYCEL [Suspect]
     Active Substance: DASATINIB
     Indication: CHRONIC MYELOID LEUKAEMIA
     Dosage: 100 MG, QID
     Route: 048
     Dates: start: 20180214, end: 201803

REACTIONS (5)
  - Anaemia [Recovering/Resolving]
  - Memory impairment [Unknown]
  - Infection [Recovering/Resolving]
  - Fatigue [Recovering/Resolving]
  - Nightmare [Recovering/Resolving]
